FAERS Safety Report 4832009-8 (Version None)
Quarter: 2005Q4

REPORT INFORMATION
  Report Type: 
  Country: None (occurrence: None)
  Receive Date: 20051116
  Receipt Date: 20051107
  Transmission Date: 20060501
  Serious: Yes (Other)
  Sender: FDA-Public Use
  Company Number: 2005-11-0327

PATIENT
  Sex: Male

DRUGS (1)
  1. NASONEX [Suspect]
     Indication: HYPERSENSITIVITY
     Dosage: UNKNOWN NASAL SPRAY
     Dates: start: 20050906, end: 20050906

REACTIONS (1)
  - BRONCHOSPASM [None]
